FAERS Safety Report 13089237 (Version 2)
Quarter: 2017Q1

REPORT INFORMATION
  Report Type: Report from Study
  Country: NL (occurrence: NL)
  Receive Date: 20170105
  Receipt Date: 20170328
  Transmission Date: 20170428
  Serious: Yes (Death)
  Sender: FDA-Public Use
  Company Number: NL-PFIZER INC-2017001870

PATIENT

DRUGS (4)
  1. VOTRIENT [Suspect]
     Active Substance: PAZOPANIB HYDROCHLORIDE
     Indication: NEOPLASM
     Dosage: 800 MG, DAILY ((FROM D2, C1 CONTINUOUS DOSING))
     Route: 048
  2. HYCAMTIN [Concomitant]
     Active Substance: TOPOTECAN HYDROCHLORIDE
     Dosage: 4 MG, UNK, CYCLIC (ON DAY 1 AND 15 OF CYCLE 1)
     Route: 048
  3. PARACETAMOL [Concomitant]
     Active Substance: ACETAMINOPHEN
     Dosage: UNK
  4. HYCAMTIN [Concomitant]
     Active Substance: TOPOTECAN HYDROCHLORIDE
     Indication: NEOPLASM
     Dosage: UNK, DAILY (0.25 OR 1.00 MG)
     Route: 048

REACTIONS (1)
  - Hepatic failure [Fatal]
